FAERS Safety Report 5074329-0 (Version None)
Quarter: 2006Q3

REPORT INFORMATION
  Report Type: 
  Country: None (occurrence: None)
  Receive Date: 20060808
  Receipt Date: 20060705
  Transmission Date: 20061208
  Serious: Yes (Death)
  Sender: FDA-Public Use
  Company Number: US-SANOFI-SYNTHELABO-A03200604358

PATIENT
  Sex: Male

DRUGS (10)
  1. PLAVIX [Suspect]
     Indication: MYOCARDIAL INFARCTION
     Route: 048
     Dates: start: 20060523
  2. LANOXIN [Concomitant]
     Route: 048
  3. IMDUR [Concomitant]
     Route: 048
  4. ASPIRIN [Concomitant]
     Route: 048
  5. COREG [Concomitant]
     Route: 048
  6. ALTACE [Concomitant]
     Route: 048
  7. ARAVA [Concomitant]
     Dosage: UNK
     Route: 048
  8. PREDNISONE [Concomitant]
     Dosage: UNK
     Route: 048
  9. NSAID [Concomitant]
     Dosage: UNK
     Route: 065
  10. COUMADIN [Suspect]
     Indication: MYOCARDIAL INFARCTION
     Route: 048
     Dates: start: 20060523

REACTIONS (1)
  - DEATH [None]
